FAERS Safety Report 16829738 (Version 1)
Quarter: 2019Q3

REPORT INFORMATION
  Report Type: Spontaneous
  Country: US (occurrence: US)
  Receive Date: 20190919
  Receipt Date: 20190919
  Transmission Date: 20191005
  Serious: No
  Sender: FDA-Public Use
  Company Number: US-TEVA-2019-US-1108847

PATIENT
  Sex: Male

DRUGS (5)
  1. FENTORA [Suspect]
     Active Substance: FENTANYL CITRATE
     Route: 065
  2. FENTORA [Suspect]
     Active Substance: FENTANYL CITRATE
     Route: 065
  3. FENTORA [Suspect]
     Active Substance: FENTANYL CITRATE
     Dosage: 1-2 TABLET PRN
     Route: 065
  4. FENTORA [Suspect]
     Active Substance: FENTANYL CITRATE
     Indication: BREAKTHROUGH PAIN
     Route: 065
     Dates: start: 2009
  5. OXYCODONE [Concomitant]
     Active Substance: OXYCODONE
     Route: 065

REACTIONS (1)
  - Mental disorder [Unknown]
